FAERS Safety Report 25031422 (Version 1)
Quarter: 2025Q1

REPORT INFORMATION
  Report Type: Spontaneous
  Country: CN (occurrence: CN)
  Receive Date: 20250303
  Receipt Date: 20250303
  Transmission Date: 20250409
  Serious: Yes (Other)
  Sender: MERCK SHARP & DOHME LLC
  Company Number: CN-009507513-2257562

PATIENT
  Age: 58 Year
  Sex: Female

DRUGS (3)
  1. CILASTATIN SODIUM\IMIPENEM [Suspect]
     Active Substance: CILASTATIN SODIUM\IMIPENEM
     Indication: Tuberculosis gastrointestinal
     Dosage: 1G, Q12H
     Route: 041
     Dates: start: 20250121, end: 20250122
  2. LEVOFLOXACIN [Suspect]
     Active Substance: LEVOFLOXACIN
     Indication: Tuberculosis gastrointestinal
     Dosage: 500 MG, QD
     Route: 041
     Dates: start: 20250121, end: 20250122
  3. VORICONAZOLE [Suspect]
     Active Substance: VORICONAZOLE
     Indication: Aspergillus infection
     Dosage: 0.2G Q12H
     Route: 041
     Dates: start: 20250121, end: 20250122

REACTIONS (4)
  - Depressed level of consciousness [Recovered/Resolved]
  - Mental disorder [Recovered/Resolved]
  - Incorrect dosage administered [Unknown]
  - Disorganised speech [Recovered/Resolved]

NARRATIVE: CASE EVENT DATE: 20250121
